FAERS Safety Report 4711665-9 (Version None)
Quarter: 2005Q2

REPORT INFORMATION
  Report Type: 
  Country: None (occurrence: None)
  Receive Date: 20050629
  Receipt Date: 20050502
  Transmission Date: 20051028
  Serious: No
  Sender: FDA-Public Use
  Company Number: 05P-163-0298956-00

PATIENT
  Age: 73 Year
  Sex: Female
  Weight: 49.8957 kg

DRUGS (6)
  1. HUMIRA [Suspect]
     Indication: PSORIATIC ARTHROPATHY
     Dosage: 40 MG, 1 IN 2 WK, SUBCUTANEOUS
     Route: 058
     Dates: start: 20050309
  2. HYDROCHLOROTHIAZIDE [Concomitant]
  3. MULTI-VITAMINS [Concomitant]
  4. FOLIC ACID [Concomitant]
  5. CALCIUM GLUCONATE [Concomitant]
  6. ALENDRONATE SODIUM [Concomitant]

REACTIONS (4)
  - INSOMNIA [None]
  - PRURITUS GENERALISED [None]
  - RASH MACULAR [None]
  - SLEEP DISORDER [None]
